FAERS Safety Report 5963424-7 (Version None)
Quarter: 2008Q4

REPORT INFORMATION
  Report Type: 
  Country: None (occurrence: None)
  Receive Date: 20081124
  Receipt Date: 20081124
  Transmission Date: 20090506
  Serious: Yes (Other)
  Sender: FDA-Public Use
  Company Number: US-RB-006542-08

PATIENT
  Sex: Female

DRUGS (5)
  1. SUBOXONE [Suspect]
     Route: 060
     Dates: start: 20081120, end: 20081120
  2. SUBOXONE [Suspect]
     Route: 060
     Dates: start: 20081118, end: 20081118
  3. SUBOXONE [Suspect]
     Route: 060
     Dates: start: 20081119, end: 20081119
  4. SUBOXONE [Suspect]
     Route: 060
     Dates: start: 20081121
  5. SUBOXONE [Suspect]
     Route: 060
     Dates: start: 20081117, end: 20081117

REACTIONS (2)
  - CONVULSION [None]
  - OVERDOSE [None]
